FAERS Safety Report 8913192 (Version 1)
Quarter: 2012Q4

REPORT INFORMATION
  Report Type: 
  Country: US (occurrence: US)
  Receive Date: 20121116
  Receipt Date: 20121116
  Transmission Date: 20130627
  Serious: Yes (Other)
  Sender: FDA-Public Use
  Company Number: US-GLAXOSMITHKLINE-A1000564A

PATIENT
  Age: 56 Year
  Sex: Female

DRUGS (9)
  1. BENLYSTA [Suspect]
     Indication: SYSTEMIC LUPUS ERYTHEMATOSUS
     Route: 042
     Dates: start: 201107
  2. NEURONTIN [Suspect]
     Indication: PAIN IN EXTREMITY
     Route: 065
  3. ARAVA [Concomitant]
     Dosage: 10MG At night
  4. LEXAPRO [Concomitant]
  5. FENTANYL PATCH [Concomitant]
  6. PERCOCET [Concomitant]
  7. CELEXA [Concomitant]
  8. TRAZODONE [Concomitant]
  9. ABILIFY [Concomitant]

REACTIONS (5)
  - Suicidal ideation [Recovering/Resolving]
  - Depression [Recovering/Resolving]
  - Pain in extremity [Recovering/Resolving]
  - Drug ineffective [Unknown]
  - Incorrect dose administered [Unknown]
